FAERS Safety Report 10375009 (Version 1)
Quarter: 2014Q3

REPORT INFORMATION
  Report Type: Spontaneous
  Country: US (occurrence: None)
  Receive Date: 20140808
  Receipt Date: 20140808
  Transmission Date: 20150326
  Serious: Yes (Other)
  Sender: FDA-Public Use
  Company Number: None

PATIENT
  Age: 43 Year
  Sex: Female
  Weight: 68.04 kg

DRUGS (1)
  1. DULOXETINE [Suspect]
     Active Substance: DULOXETINE
     Indication: DEPRESSION
     Dates: start: 201403, end: 201406

REACTIONS (4)
  - Migraine [None]
  - Drug withdrawal syndrome [None]
  - Emotional disorder [None]
  - Product substitution issue [None]

NARRATIVE: CASE EVENT DATE: 20140619
